FAERS Safety Report 14163230 (Version 1)
Quarter: 2017Q4

REPORT INFORMATION
  Report Type: Spontaneous
  Country: US (occurrence: US)
  Receive Date: 20171106
  Receipt Date: 20171106
  Transmission Date: 20180321
  Serious: Yes (Life-Threatening, Hospitalization, Other)
  Sender: FDA-Public Use
  Company Number: US-MYLANLABS-2017M1068706

PATIENT
  Age: 26 Year
  Sex: Female

DRUGS (4)
  1. DILTIAZEM. [Interacting]
     Active Substance: DILTIAZEM
     Dosage: 80 TABLETS OF DILTIAZEM 30MG
     Route: 048
  2. METOPROLOL. [Interacting]
     Active Substance: METOPROLOL
     Indication: ATRIAL TACHYCARDIA
     Route: 048
  3. METOPROLOL. [Interacting]
     Active Substance: METOPROLOL
     Dosage: NEARLY FULL BOTTLE OF METOPROLOL TARTRATE 25MG TABLETS
     Route: 048
  4. DILTIAZEM. [Suspect]
     Active Substance: DILTIAZEM
     Indication: ATRIAL TACHYCARDIA
     Route: 048

REACTIONS (7)
  - Hypotension [Recovering/Resolving]
  - Intentional overdose [Recovering/Resolving]
  - Drug interaction [Recovering/Resolving]
  - Bradyarrhythmia [Recovering/Resolving]
  - Pulmonary oedema [Unknown]
  - Suicide attempt [Recovered/Resolved]
  - Unresponsive to stimuli [Recovered/Resolved]
